FAERS Safety Report 21971165 (Version 3)
Quarter: 2023Q2

REPORT INFORMATION
  Report Type: Spontaneous
  Country: US (occurrence: US)
  Receive Date: 20230209
  Receipt Date: 20230626
  Transmission Date: 20230722
  Serious: No
  Sender: FDA-Public Use
  Company Number: US-TAKEDA-2023TUS012710

PATIENT
  Sex: Male

DRUGS (2)
  1. GLASSIA [Suspect]
     Active Substance: .ALPHA.1-PROTEINASE INHIBITOR HUMAN
     Indication: Product used for unknown indication
     Dosage: UNK
     Route: 065
  2. GLASSIA [Suspect]
     Active Substance: .ALPHA.1-PROTEINASE INHIBITOR HUMAN
     Indication: Product used for unknown indication
     Dosage: UNK
     Route: 065

REACTIONS (7)
  - Infusion site swelling [Unknown]
  - Infusion site bruising [Unknown]
  - Poor venous access [Unknown]
  - Product distribution issue [Unknown]
  - Headache [Unknown]
  - Nausea [Unknown]
  - Inappropriate schedule of product administration [Unknown]
